FAERS Safety Report 22161200 (Version 1)
Quarter: 2023Q1

REPORT INFORMATION
  Report Type: Spontaneous
  Country: FR (occurrence: FR)
  Receive Date: 20230331
  Receipt Date: 20230331
  Transmission Date: 20230418
  Serious: Yes (Hospitalization)
  Sender: FDA-Public Use
  Company Number: None

PATIENT
  Age: 7 Year
  Sex: Female
  Weight: 26 kg

DRUGS (5)
  1. ACETAMINOPHEN [Suspect]
     Active Substance: ACETAMINOPHEN
     Indication: Antipyresis
     Dosage: UNIT DOSE - 400 MG
     Route: 042
     Dates: start: 20230307, end: 20230309
  2. REMICADE [Suspect]
     Active Substance: INFLIXIMAB
     Indication: Crohn^s disease
     Dosage: UNIT DOSE - 120 MG
     Route: 042
     Dates: start: 202204
  3. MAXILASE [Suspect]
     Active Substance: PANCRELIPASE
     Indication: Tonsillitis streptococcal
     Route: 042
     Dates: start: 20230306, end: 20230311
  4. AMOXICILLIN [Suspect]
     Active Substance: AMOXICILLIN
     Indication: Tonsillitis streptococcal
     Dosage: UNIT DOSE - 900 MG
     Route: 042
     Dates: start: 20230306, end: 20230311
  5. AZATHIOPRINE [Suspect]
     Active Substance: AZATHIOPRINE
     Indication: Crohn^s disease
     Route: 048
     Dates: start: 202204, end: 20230306

REACTIONS (1)
  - Hepatic cytolysis [Not Recovered/Not Resolved]

NARRATIVE: CASE EVENT DATE: 20230309
